FAERS Safety Report 7491657-X (Version None)
Quarter: 2011Q2

REPORT INFORMATION
  Report Type: 
  Country: None (occurrence: None)
  Receive Date: 20110518
  Receipt Date: 20110518
  Transmission Date: 20111010
  Serious: Yes (Hospitalization)
  Sender: FDA-Public Use
  Company Number: None

PATIENT
  Age: 10 Year
  Sex: Male
  Weight: 43.0917 kg

DRUGS (7)
  1. PAXIL [Suspect]
     Indication: ANXIETY
     Dosage: 5MG 1X/DAY PO
     Route: 048
     Dates: start: 20110308, end: 20110315
  2. PAXIL [Suspect]
     Indication: DEPRESSION
     Dosage: 5MG 1X/DAY PO
     Route: 048
     Dates: start: 20110308, end: 20110315
  3. PAXIL [Suspect]
     Indication: ANXIETY
     Dosage: 10MG 1X/DAY PO
     Route: 048
     Dates: start: 20110309, end: 20110422
  4. PAXIL [Suspect]
     Indication: DEPRESSION
     Dosage: 10MG 1X/DAY PO
     Route: 048
     Dates: start: 20110309, end: 20110422
  5. ZYRTEC [Concomitant]
  6. LAMICTAL [Concomitant]
  7. SINGULAIR [Concomitant]

REACTIONS (1)
  - SUICIDAL IDEATION [None]
